FAERS Safety Report 6129028-0 (Version None)
Quarter: 2009Q1

REPORT INFORMATION
  Report Type: 
  Country: None (occurrence: None)
  Receive Date: 20090324
  Receipt Date: 20090311
  Transmission Date: 20090719
  Serious: Yes (Other)
  Sender: FDA-Public Use
  Company Number: US-ELI_LILLY_AND_COMPANY-US200903002875

PATIENT
  Sex: Female

DRUGS (1)
  1. EVISTA [Suspect]
     Indication: PROPHYLAXIS
     Dosage: UNK, UNKNOWN
     Route: 065
     Dates: start: 19950101

REACTIONS (5)
  - BLOOD PARATHYROID HORMONE INCREASED [None]
  - ERYTHROPSIA [None]
  - EYE HAEMORRHAGE [None]
  - VARICOSE VEIN [None]
  - VISION BLURRED [None]
